FAERS Safety Report 4662925-1 (Version None)
Quarter: 2005Q2

REPORT INFORMATION
  Report Type: 
  Country: None (occurrence: None)
  Receive Date: 20050511
  Receipt Date: 20050404
  Transmission Date: 20051028
  Serious: Yes (Hospitalization)
  Sender: FDA-Public Use
  Company Number: 401041

PATIENT
  Age: 52 Year
  Sex: Male
  Weight: 79.4 kg

DRUGS (2)
  1. PEGASYS [Suspect]
     Indication: HEPATITIS C VIRUS
     Dosage: 180 MCG 1 PER WEKK SUBCUTANEOUS
     Route: 058
     Dates: start: 20050311, end: 20050328
  2. COPEGUS [Suspect]
     Indication: HEPATITIS C VIRUS
     Dosage: 400 MG 2 PER DAY ORAL
     Route: 048
     Dates: start: 20050311, end: 20050328

REACTIONS (5)
  - DEHYDRATION [None]
  - DEPRESSION [None]
  - INFLUENZA [None]
  - INFLUENZA LIKE ILLNESS [None]
  - VOMITING [None]
